FAERS Safety Report 7712733-X (Version None)
Quarter: 2011Q3

REPORT INFORMATION
  Report Type: 
  Country: None (occurrence: None)
  Receive Date: 20110826
  Receipt Date: 20110812
  Transmission Date: 20111222
  Serious: Yes (Hospitalization)
  Sender: FDA-Public Use
  Company Number: US-GLAXOSMITHKLINE-A0873787A

PATIENT
  Age: 49 Year
  Sex: Female
  Weight: 62.7 kg

DRUGS (6)
  1. ALTACE [Concomitant]
  2. AVANDIA [Suspect]
     Indication: DIABETES MELLITUS
     Dosage: 4MG TWICE PER DAY
     Route: 048
     Dates: start: 20031001, end: 20080901
  3. LIPITOR [Concomitant]
  4. GLUCOTROL [Concomitant]
  5. VERAPAMIL [Concomitant]
  6. GLUCOPHAGE [Concomitant]

REACTIONS (6)
  - CARDIOVASCULAR DISORDER [None]
  - CHEST PAIN [None]
  - CATHETERISATION CARDIAC [None]
  - RENAL FAILURE [None]
  - DYSPNOEA [None]
  - CEREBROVASCULAR ACCIDENT [None]
